FAERS Safety Report 4564653-X (Version None)
Quarter: 2005Q1

REPORT INFORMATION
  Report Type: 
  Country: None (occurrence: None)
  Receive Date: 20050126
  Receipt Date: 20050112
  Transmission Date: 20050727
  Serious: Yes (Hospitalization)
  Sender: FDA-Public Use
  Company Number: 2005CG00121

PATIENT
  Age: 65 Year
  Sex: Male

DRUGS (2)
  1. CASODEX [Suspect]
     Indication: PROSTATE CANCER
     Dosage: 100 MG DAILY PO
     Route: 048
     Dates: start: 20041122
  2. RADIOTHERAPY [Concomitant]

REACTIONS (8)
  - CHOLESTASIS [None]
  - HEPATIC FAILURE [None]
  - HEPATIC LESION [None]
  - HEPATOCELLULAR DAMAGE [None]
  - PELIOSIS HEPATIS [None]
  - PORTAL HYPERTENSION [None]
  - TRANSAMINASES INCREASED [None]
  - VASCULAR PURPURA [None]
